FAERS Safety Report 5954360-0 (Version None)
Quarter: 2008Q4

REPORT INFORMATION
  Report Type: 
  Country: None (occurrence: None)
  Receive Date: 20081117
  Receipt Date: 20080129
  Transmission Date: 20090506
  Serious: No
  Sender: FDA-Public Use
  Company Number: US-AMGEN-KDL258788

PATIENT
  Sex: Female
  Weight: 54.5 kg

DRUGS (3)
  1. ENBREL [Suspect]
     Indication: RHEUMATOID ARTHRITIS
     Route: 058
     Dates: start: 20080108
  2. SULFASALAZINE [Concomitant]
     Route: 048
     Dates: start: 20061001
  3. METHOTREXATE [Concomitant]
     Route: 048
     Dates: start: 20070401

REACTIONS (1)
  - INJECTION SITE PAIN [None]
